FAERS Safety Report 5330742-5 (Version None)
Quarter: 2007Q2

REPORT INFORMATION
  Report Type: 
  Country: None (occurrence: None)
  Receive Date: 20070522
  Receipt Date: 20070514
  Transmission Date: 20071010
  Serious: Yes (Other)
  Sender: FDA-Public Use
  Company Number: PHBS2007SE08147

PATIENT
  Age: 75 Year
  Sex: Male

DRUGS (11)
  1. ZOMETA [Suspect]
     Indication: MULTIPLE MYELOMA
     Dosage: 4 MG, QMO
     Dates: start: 20040101, end: 20061201
  2. XATRAL [Concomitant]
  3. COZAAR [Concomitant]
  4. MOVICOL [Concomitant]
  5. PROBECID [Concomitant]
  6. WARAN [Concomitant]
  7. METOPROLOL TARTRATE [Concomitant]
  8. ATROVENT [Concomitant]
  9. IMOVANE [Concomitant]
  10. DETRUSITOL [Concomitant]
  11. TRIOBE [Concomitant]

REACTIONS (2)
  - BONE DISORDER [None]
  - OSTEONECROSIS [None]
